FAERS Safety Report 17584713 (Version 3)
Quarter: 2020Q4

REPORT INFORMATION
  Report Type: Spontaneous
  Country: CO (occurrence: CO)
  Receive Date: 20200326
  Receipt Date: 20201030
  Transmission Date: 20210113
  Serious: Yes (Other)
  Sender: FDA-Public Use
  Company Number: CO-PFIZER INC-2020092949

PATIENT
  Age: 62 Year
  Sex: Female

DRUGS (2)
  1. REAMPLA [Suspect]
     Active Substance: PALBOCICLIB
     Dosage: 125 MG, CYCLIC (DAILY, 21 DAYS AND REST 10 OR SOMETIMES 7 DAYS)
     Route: 048
     Dates: start: 201912
  2. REAMPLA [Suspect]
     Active Substance: PALBOCICLIB
     Indication: BREAST CANCER METASTATIC
     Dosage: 125 MG, CYCLIC (DAILY, 3X1 SCHEME)
     Route: 048
     Dates: start: 20200219

REACTIONS (9)
  - Dizziness [Unknown]
  - Decreased immune responsiveness [Recovered/Resolved]
  - Neoplasm progression [Unknown]
  - Flatulence [Not Recovered/Not Resolved]
  - Dysgeusia [Unknown]
  - Vomiting [Not Recovered/Not Resolved]
  - Apnoea [Unknown]
  - Diarrhoea [Not Recovered/Not Resolved]
  - Dyspnoea [Unknown]

NARRATIVE: CASE EVENT DATE: 2020
